FAERS Safety Report 9852446 (Version 3)
Quarter: 2016Q1

REPORT INFORMATION
  Report Type: Spontaneous
  Country: PL (occurrence: PL)
  Receive Date: 20140129
  Receipt Date: 20160229
  Transmission Date: 20160526
  Serious: Yes (Life-Threatening, Hospitalization)
  Sender: FDA-Public Use
  Company Number: PL-SA-2014SA008015

PATIENT
  Age: 58 Year
  Sex: Female

DRUGS (28)
  1. METYPRED [Concomitant]
     Active Substance: METHYLPREDNISOLONE
     Indication: RHEUMATOID ARTHRITIS
     Route: 048
     Dates: start: 20140306
  2. METHOTREXATE [Concomitant]
     Active Substance: METHOTREXATE
     Indication: RHEUMATOID ARTHRITIS
     Route: 048
     Dates: start: 20101119
  3. DICLOFENAC [Concomitant]
     Active Substance: DICLOFENAC
     Indication: RHEUMATOID ARTHRITIS
     Route: 048
     Dates: start: 20130507
  4. ROSWERA [Concomitant]
     Indication: HYPERLIPIDAEMIA
     Route: 048
     Dates: start: 2012
  5. KLACID [Concomitant]
     Active Substance: CLARITHROMYCIN
     Indication: UPPER RESPIRATORY TRACT INFECTION
     Route: 048
     Dates: start: 20131010, end: 20131016
  6. KETONAL [Concomitant]
     Active Substance: KETOPROFEN
     Dates: start: 20131214, end: 20131223
  7. METYPRED [Concomitant]
     Active Substance: METHYLPREDNISOLONE
     Indication: RHEUMATOID ARTHRITIS
     Route: 048
     Dates: start: 20101119
  8. METOCLOPRAMIDE. [Concomitant]
     Active Substance: METOCLOPRAMIDE
     Dates: start: 20131214, end: 20131223
  9. METRONIDAZOLE. [Concomitant]
     Active Substance: METRONIDAZOLE
     Route: 042
     Dates: start: 20131214, end: 20131223
  10. CLEXANE [Suspect]
     Active Substance: ENOXAPARIN SODIUM
     Indication: RHEUMATOID ARTHRITIS
     Route: 058
     Dates: start: 20131214
  11. METYPRED [Concomitant]
     Active Substance: METHYLPREDNISOLONE
     Indication: RHEUMATOID ARTHRITIS
     Route: 048
     Dates: start: 20140306
  12. LACIPIL [Concomitant]
     Active Substance: LACIDIPINE
     Indication: HYPERTENSION
     Route: 048
     Dates: start: 201209
  13. ZINNAT [Concomitant]
     Active Substance: CEFUROXIME AXETIL
     Indication: SINUSITIS
     Route: 048
     Dates: start: 20131119, end: 20131128
  14. PYRALGIN [Concomitant]
     Active Substance: DIPYRONE
     Dates: start: 20131214, end: 20131223
  15. ACIDUM FOLICUM [Concomitant]
     Active Substance: FOLIC ACID
     Route: 048
     Dates: start: 20101119
  16. EUTHYROX [Concomitant]
     Active Substance: LEVOTHYROXINE SODIUM
     Indication: AUTOIMMUNE THYROIDITIS
     Route: 048
     Dates: start: 200102
  17. METOCLOPRAMIDE. [Concomitant]
     Active Substance: METOCLOPRAMIDE
  18. CLEXANE [Suspect]
     Active Substance: ENOXAPARIN SODIUM
     Indication: RHEUMATOID ARTHRITIS
     Route: 058
     Dates: start: 20131215, end: 20131223
  19. CLEXANE [Suspect]
     Active Substance: ENOXAPARIN SODIUM
     Indication: RHEUMATOID ARTHRITIS
     Route: 058
     Dates: start: 20131224
  20. DEFLEGMIN [Concomitant]
     Indication: SINUSITIS
     Route: 048
     Dates: start: 20131119, end: 20131128
  21. OMEPRAZOLE. [Concomitant]
     Active Substance: OMEPRAZOLE
     Route: 048
     Dates: start: 20130506
  22. NEBILET [Concomitant]
     Active Substance: NEBIVOLOL
     Route: 048
     Dates: start: 20131107
  23. AMOKSIKLAV [Concomitant]
     Active Substance: AMOXICILLIN\CLAVULANATE POTASSIUM
     Route: 042
     Dates: start: 20131213, end: 20131223
  24. METEX [Concomitant]
     Active Substance: METFORMIN HYDROCHLORIDE
     Route: 058
     Dates: start: 20140306
  25. TOCILIZUMAB [Suspect]
     Active Substance: TOCILIZUMAB
     Indication: RHEUMATOID ARTHRITIS
     Dosage: EVERY 4 WEEKS
     Route: 042
     Dates: start: 20130522
  26. MOVALIS [Concomitant]
     Active Substance: MELOXICAM
     Indication: RHEUMATOID ARTHRITIS
     Route: 048
     Dates: start: 20101119, end: 20130506
  27. HYDROCHLOROTHIAZIDE/TELMISARTAN [Concomitant]
     Indication: HYPERTENSION
     Route: 048
     Dates: start: 201209
  28. NEBILET [Concomitant]
     Active Substance: NEBIVOLOL
     Route: 048
     Dates: start: 201209, end: 20131106

REACTIONS (2)
  - Diverticular perforation [Recovered/Resolved with Sequelae]
  - Diverticulitis [Recovered/Resolved with Sequelae]

NARRATIVE: CASE EVENT DATE: 20131213
